FAERS Safety Report 5616680-9 (Version None)
Quarter: 2008Q1

REPORT INFORMATION
  Report Type: 
  Country: None (occurrence: None)
  Receive Date: 20080207
  Receipt Date: 20080130
  Transmission Date: 20080703
  Serious: Yes (Other)
  Sender: FDA-Public Use
  Company Number: PHHY2008GB01193

PATIENT
  Sex: Female

DRUGS (2)
  1. EXELON [Suspect]
     Indication: PARKINSONISM
     Dosage: 9.5MG PATCH
  2. EXELON [Suspect]
     Dosage: 4.6MG PATCH

REACTIONS (2)
  - ABASIA [None]
  - HYPOAESTHESIA [None]
